FAERS Safety Report 22006598 (Version 1)
Quarter: 2023Q1

REPORT INFORMATION
  Report Type: Other
  Country: CN (occurrence: None)
  Receive Date: 20230217
  Receipt Date: 20230217
  Transmission Date: 20230417
  Serious: Yes (Other)
  Sender: FDA-Public Use
  Company Number: CN-Nivagen-000038

PATIENT
  Age: 3 Year
  Sex: Male

DRUGS (2)
  1. DECITABINE [Suspect]
     Active Substance: DECITABINE
     Indication: Thrombocytopenia
     Dosage: 10 MG/ M2 X 3D
  2. DECITABINE [Suspect]
     Active Substance: DECITABINE
     Indication: Thrombocytopenia
     Dosage: 10 MG/ M2 X 3D

REACTIONS (2)
  - Neutropenia [Unknown]
  - Therapy partial responder [Unknown]
